FAERS Safety Report 8341014-9 (Version None)
Quarter: 2012Q2

REPORT INFORMATION
  Report Type: 
  Country: None (occurrence: None)
  Receive Date: 20120502
  Receipt Date: 20120425
  Transmission Date: 20120825
  Serious: Yes (Hospitalization)
  Sender: FDA-Public Use
  Company Number: 2012SP021385

PATIENT
  Age: 50 Year
  Sex: Male
  Weight: 82.4 kg

DRUGS (54)
  1. NORVASC [Concomitant]
  2. ACETAMINOPHEN [Concomitant]
  3. EPINASTINE HYDROCHLORIDE [Concomitant]
  4. ROCURONIUM BROMIDE [Concomitant]
  5. PEGINTERFERON ALFA-2B [Suspect]
     Indication: HEPATITIS C
     Dosage: 120 MCG;QW;SC
     Route: 058
     Dates: start: 20120321, end: 20120321
  6. PEGINTERFERON ALFA-2B [Suspect]
     Indication: HEPATITIS C
     Dosage: 120 MCG;QW;SC
     Route: 058
     Dates: start: 20120328, end: 20120328
  7. PEGINTERFERON ALFA-2B [Suspect]
     Indication: HEPATITIS C
     Dosage: 120 MCG;QW;SC
     Route: 058
     Dates: start: 20120118, end: 20120118
  8. PEGINTERFERON ALFA-2B [Suspect]
     Indication: HEPATITIS C
     Dosage: 120 MCG;QW;SC
     Route: 058
     Dates: start: 20120208, end: 20120208
  9. PEGINTERFERON ALFA-2B [Suspect]
     Indication: HEPATITIS C
     Dosage: 120 MCG;QW;SC
     Route: 058
     Dates: start: 20120215, end: 20120215
  10. PEGINTERFERON ALFA-2B [Suspect]
     Indication: HEPATITIS C
     Dosage: 120 MCG;QW;SC
     Route: 058
     Dates: start: 20120111, end: 20120111
  11. PEGINTERFERON ALFA-2B [Suspect]
     Indication: HEPATITIS C
     Dosage: 120 MCG;QW;SC
     Route: 058
     Dates: start: 20120125, end: 20120125
  12. PEGINTERFERON ALFA-2B [Suspect]
     Indication: HEPATITIS C
     Dosage: 120 MCG;QW;SC
     Route: 058
     Dates: start: 20120229, end: 20120229
  13. PEGINTERFERON ALFA-2B [Suspect]
     Indication: HEPATITIS C
     Dosage: 120 MCG;QW;SC
     Route: 058
     Dates: start: 20120314, end: 20120314
  14. PEGINTERFERON ALFA-2B [Suspect]
     Indication: HEPATITIS C
     Dosage: 120 MCG;QW;SC
     Route: 058
     Dates: start: 20120104, end: 20120104
  15. PEGINTERFERON ALFA-2B [Suspect]
     Indication: HEPATITIS C
     Dosage: 120 MCG;QW;SC
     Route: 058
     Dates: start: 20120307, end: 20120307
  16. PEGINTERFERON ALFA-2B [Suspect]
     Indication: HEPATITIS C
     Dosage: 120 MCG;QW;SC
     Route: 058
     Dates: start: 20120201, end: 20120201
  17. PEGINTERFERON ALFA-2B [Suspect]
     Indication: HEPATITIS C
     Dosage: 120 MCG;QW;SC
     Route: 058
     Dates: start: 20120222, end: 20120222
  18. ROPIVACAINE HYDROCHLORIDE [Concomitant]
  19. NORADRENALIN [Concomitant]
  20. RIBAVIRIN [Suspect]
     Indication: HEPATITIS C
     Dosage: 1000 MG;QD;PO; 1000 MG;UNK;PO
     Route: 048
     Dates: start: 20120201, end: 20120208
  21. RIBAVIRIN [Suspect]
     Indication: HEPATITIS C
     Dosage: 1000 MG;QD;PO; 1000 MG;UNK;PO
     Route: 048
     Dates: start: 20120314, end: 20120320
  22. RIBAVIRIN [Suspect]
     Indication: HEPATITIS C
     Dosage: 1000 MG;QD;PO; 1000 MG;UNK;PO
     Route: 048
     Dates: start: 20120111, end: 20120117
  23. RIBAVIRIN [Suspect]
     Indication: HEPATITIS C
     Dosage: 1000 MG;QD;PO; 1000 MG;UNK;PO
     Route: 048
     Dates: start: 20120125, end: 20120131
  24. RIBAVIRIN [Suspect]
     Indication: HEPATITIS C
     Dosage: 1000 MG;QD;PO; 1000 MG;UNK;PO
     Route: 048
     Dates: start: 20120126, end: 20120131
  25. RIBAVIRIN [Suspect]
     Indication: HEPATITIS C
     Dosage: 1000 MG;QD;PO; 1000 MG;UNK;PO
     Route: 048
     Dates: start: 20120209, end: 20120215
  26. RIBAVIRIN [Suspect]
     Indication: HEPATITIS C
     Dosage: 1000 MG;QD;PO; 1000 MG;UNK;PO
     Route: 048
     Dates: start: 20120222, end: 20120228
  27. RIBAVIRIN [Suspect]
     Indication: HEPATITIS C
     Dosage: 1000 MG;QD;PO; 1000 MG;UNK;PO
     Route: 048
     Dates: start: 20120308, end: 20120314
  28. RIBAVIRIN [Suspect]
     Indication: HEPATITIS C
     Dosage: 1000 MG;QD;PO; 1000 MG;UNK;PO
     Route: 048
     Dates: start: 20120105, end: 20120111
  29. RIBAVIRIN [Suspect]
     Indication: HEPATITIS C
     Dosage: 1000 MG;QD;PO; 1000 MG;UNK;PO
     Route: 048
     Dates: start: 20120112, end: 20120118
  30. RIBAVIRIN [Suspect]
     Indication: HEPATITIS C
     Dosage: 1000 MG;QD;PO; 1000 MG;UNK;PO
     Route: 048
     Dates: start: 20120215, end: 20120221
  31. RIBAVIRIN [Suspect]
     Indication: HEPATITIS C
     Dosage: 1000 MG;QD;PO; 1000 MG;UNK;PO
     Route: 048
     Dates: start: 20120229, end: 20120306
  32. RIBAVIRIN [Suspect]
     Indication: HEPATITIS C
     Dosage: 1000 MG;QD;PO; 1000 MG;UNK;PO
     Route: 048
     Dates: start: 20120301, end: 20120307
  33. RIBAVIRIN [Suspect]
     Indication: HEPATITIS C
     Dosage: 1000 MG;QD;PO; 1000 MG;UNK;PO
     Route: 048
     Dates: start: 20120307, end: 20120313
  34. RIBAVIRIN [Suspect]
     Indication: HEPATITIS C
     Dosage: 1000 MG;QD;PO; 1000 MG;UNK;PO
     Route: 048
     Dates: start: 20120104, end: 20120104
  35. RIBAVIRIN [Suspect]
     Indication: HEPATITIS C
     Dosage: 1000 MG;QD;PO; 1000 MG;UNK;PO
     Route: 048
     Dates: start: 20120208, end: 20120214
  36. RIBAVIRIN [Suspect]
     Indication: HEPATITIS C
     Dosage: 1000 MG;QD;PO; 1000 MG;UNK;PO
     Route: 048
     Dates: start: 20120315, end: 20120321
  37. RIBAVIRIN [Suspect]
     Indication: HEPATITIS C
     Dosage: 1000 MG;QD;PO; 1000 MG;UNK;PO
     Route: 048
     Dates: start: 20120321, end: 20120327
  38. RIBAVIRIN [Suspect]
     Indication: HEPATITIS C
     Dosage: 1000 MG;QD;PO; 1000 MG;UNK;PO
     Route: 048
     Dates: start: 20120119, end: 20120125
  39. RIBAVIRIN [Suspect]
     Indication: HEPATITIS C
     Dosage: 1000 MG;QD;PO; 1000 MG;UNK;PO
     Route: 048
     Dates: start: 20120216, end: 20120222
  40. RIBAVIRIN [Suspect]
     Indication: HEPATITIS C
     Dosage: 1000 MG;QD;PO; 1000 MG;UNK;PO
     Route: 048
     Dates: start: 20120322, end: 20120327
  41. RIBAVIRIN [Suspect]
     Indication: HEPATITIS C
     Dosage: 1000 MG;QD;PO; 1000 MG;UNK;PO
     Route: 048
     Dates: start: 20120104, end: 20120110
  42. RIBAVIRIN [Suspect]
     Indication: HEPATITIS C
     Dosage: 1000 MG;QD;PO; 1000 MG;UNK;PO
     Route: 048
     Dates: start: 20120118, end: 20120124
  43. RIBAVIRIN [Suspect]
     Indication: HEPATITIS C
     Dosage: 1000 MG;QD;PO; 1000 MG;UNK;PO
     Route: 048
     Dates: start: 20120201, end: 20120207
  44. RIBAVIRIN [Suspect]
     Indication: HEPATITIS C
     Dosage: 1000 MG;QD;PO; 1000 MG;UNK;PO
     Route: 048
     Dates: start: 20120223, end: 20120229
  45. MK07009 (INVESTIGATIONAL DRUG) [Suspect]
     Indication: HEPATITIS C
     Dosage: 300 MG;BID;
     Dates: start: 20120104, end: 20120327
  46. VEEN F [Concomitant]
  47. FLURBIPROFEN [Concomitant]
  48. PRAVASTATIN SODIUM [Concomitant]
  49. ALLOPURINOL [Concomitant]
  50. MYOCOR [Concomitant]
  51. CLINDAMYCIN [Concomitant]
  52. SOLITA T [Concomitant]
  53. TERRA-CORTRIL [Concomitant]
  54. METHYL EPHEDRINE [Concomitant]

REACTIONS (3)
  - APPENDICITIS [None]
  - PROCEDURAL VOMITING [None]
  - PNEUMONIA ASPIRATION [None]
